FAERS Safety Report 11647763 (Version 1)
Quarter: 2015Q4

REPORT INFORMATION
  Report Type: Spontaneous
  Country: SD (occurrence: SD)
  Receive Date: 20151021
  Receipt Date: 20151021
  Transmission Date: 20160304
  Serious: Yes (Other)
  Sender: FDA-Public Use
  Company Number: SD-SUN PHARMACEUTICAL INDUSTRIES LTD-2015RR-104645

PATIENT

DRUGS (2)
  1. CYCLOPHOSAMIDE [Suspect]
     Active Substance: CYCLOPHOSPHAMIDE
     Indication: OVARIAN CANCER
     Dosage: 600 MG/M2, ON DAY ONE EVERY FOUR WEEKS FOR SIX CYCLES
     Route: 042
  2. CARBOPLATIN. [Suspect]
     Active Substance: CARBOPLATIN
     Indication: OVARIAN CANCER
     Dosage: 300 MG/M2, ON DAY 1 EVERY FOUR WEEKS FOR SIX CYCLES
     Route: 042

REACTIONS (4)
  - Gastrointestinal toxicity [Unknown]
  - Caesarean section [None]
  - Exposure during pregnancy [None]
  - Haematotoxicity [Unknown]
